FAERS Safety Report 9557765 (Version 1)
Quarter: 2013Q3

REPORT INFORMATION
  Report Type: Spontaneous
  Country: US (occurrence: US)
  Receive Date: 20130926
  Receipt Date: 20130926
  Transmission Date: 20140515
  Serious: No
  Sender: FDA-Public Use
  Company Number: US-TARO-2012P1061056

PATIENT
  Sex: Female

DRUGS (1)
  1. DESONIDE CREAM USP 0.05% [Suspect]
     Indication: ECZEMA

REACTIONS (2)
  - Fungal infection [Not Recovered/Not Resolved]
  - Eczema [Not Recovered/Not Resolved]
